FAERS Safety Report 5194566-4 (Version None)
Quarter: 2006Q4

REPORT INFORMATION
  Report Type: 
  Country: None (occurrence: None)
  Receive Date: 20061221
  Receipt Date: 20061211
  Transmission Date: 20070319
  Serious: Yes (Other)
  Sender: FDA-Public Use
  Company Number: 2006117186

PATIENT
  Age: 17 Year
  Sex: Male

DRUGS (1)
  1. RANITIDINE HYDROCHLORIDE [Suspect]
     Indication: GASTRIC DISORDER
     Dosage: ORAL
     Route: 048

REACTIONS (3)
  - DYSKINESIA [None]
  - HELICOBACTER INFECTION [None]
  - MUSCLE CONTRACTIONS INVOLUNTARY [None]
